FAERS Safety Report 10693806 (Version 2)
Quarter: 2015Q2

REPORT INFORMATION
  Report Type: Spontaneous
  Country: US (occurrence: US)
  Receive Date: 20150106
  Receipt Date: 20150611
  Transmission Date: 20150821
  Serious: Yes (Hospitalization)
  Sender: FDA-Public Use
  Company Number: US-BAYER-2015-001360

PATIENT
  Age: 17 Year
  Sex: Female
  Weight: 54.42 kg

DRUGS (1)
  1. MIRENA [Suspect]
     Active Substance: LEVONORGESTREL
     Dosage: 20 MCG/24HR, CONT
     Route: 015
     Dates: start: 20070520, end: 20091012

REACTIONS (10)
  - Device issue [None]
  - Depression [None]
  - Pain [None]
  - Genital haemorrhage [None]
  - Emotional distress [None]
  - Off label use of device [None]
  - Muscle spasms [None]
  - Uterine perforation [None]
  - Injury [None]
  - Anxiety [None]

NARRATIVE: CASE EVENT DATE: 2007
